FAERS Safety Report 23652060 (Version 3)
Quarter: 2024Q2

REPORT INFORMATION
  Report Type: Spontaneous
  Country: US (occurrence: US)
  Receive Date: 20240320
  Receipt Date: 20240502
  Transmission Date: 20240716
  Serious: No
  Sender: FDA-Public Use
  Company Number: US-GSKCCFUS-Case-01959183_AE-108878

PATIENT
  Sex: Female
  Weight: 56.236 kg

DRUGS (1)
  1. BREO ELLIPTA [Suspect]
     Active Substance: FLUTICASONE FUROATE\VILANTEROL TRIFENATATE
     Indication: Product used for unknown indication
     Dosage: UNK,100/25 MCG
     Route: 055
     Dates: start: 20240307, end: 20240309

REACTIONS (3)
  - Oral discomfort [Unknown]
  - Extra dose administered [Unknown]
  - Product complaint [Unknown]
